FAERS Safety Report 7132132-1 (Version None)
Quarter: 2010Q4

REPORT INFORMATION
  Report Type: 
  Country: None (occurrence: None)
  Receive Date: 20101202
  Receipt Date: 20101109
  Transmission Date: 20110411
  Serious: No
  Sender: FDA-Public Use
  Company Number: JP-ASTRAZENECA-2010SE52050

PATIENT
  Age: 70 Year
  Sex: Female

DRUGS (1)
  1. OMEPRAL [Suspect]
     Route: 048

REACTIONS (1)
  - LOSS OF CONSCIOUSNESS [None]
